FAERS Safety Report 8185769-5 (Version None)
Quarter: 2012Q1

REPORT INFORMATION
  Report Type: 
  Country: None (occurrence: None)
  Receive Date: 20120305
  Receipt Date: 20120229
  Transmission Date: 20120608
  Serious: Yes (Hospitalization)
  Sender: FDA-Public Use
  Company Number: US-B.I. PHARMACEUTICALS,INC./RIDGEFIELD-2012-BP-02516BP

PATIENT
  Sex: Male
  Weight: 145.5 kg

DRUGS (10)
  1. PRADAXA [Suspect]
     Indication: ATRIAL FIBRILLATION
     Dosage: 300 MG
     Route: 048
     Dates: end: 20120128
  2. AMIODARONE HCL [Concomitant]
  3. NORVASC [Concomitant]
  4. ZETIA [Concomitant]
  5. LEVITRA [Concomitant]
  6. FUROSEMIDE [Concomitant]
  7. ATENOLOL [Concomitant]
  8. ALTACE [Concomitant]
  9. FLUTICASONE PROPIONATE [Concomitant]
  10. COUMADIN [Concomitant]

REACTIONS (3)
  - EMBOLIC STROKE [None]
  - TRANSIENT ISCHAEMIC ATTACK [None]
  - CEREBROVASCULAR ACCIDENT [None]
